FAERS Safety Report 23289602 (Version 1)
Quarter: 2023Q4

REPORT INFORMATION
  Report Type: Report from Study
  Country: CN (occurrence: CN)
  Receive Date: 20231212
  Receipt Date: 20231212
  Transmission Date: 20240110
  Serious: Yes (Hospitalization)
  Sender: FDA-Public Use
  Company Number: CN-Eisai-EC-2023-154896

PATIENT
  Age: 34 Year
  Sex: Female
  Weight: 74 kg

DRUGS (5)
  1. ERIBULIN [Suspect]
     Active Substance: ERIBULIN
     Indication: Breast cancer
     Route: 042
     Dates: start: 20231026, end: 20231102
  2. ERIBULIN [Suspect]
     Active Substance: ERIBULIN
     Route: 042
     Dates: start: 20231116, end: 20231116
  3. CELECOXIB [Concomitant]
     Active Substance: CELECOXIB
     Route: 048
     Dates: start: 20231117
  4. OXYCODONE AND ACETAMINOPHEN [Concomitant]
     Active Substance: ACETAMINOPHEN\OXYCODONE HYDROCHLORIDE
     Route: 048
     Dates: start: 20231117
  5. GLYCYRRIZIN [Concomitant]
     Indication: Breast cancer
     Dates: start: 20231102

REACTIONS (1)
  - Pneumonitis [Not Recovered/Not Resolved]

NARRATIVE: CASE EVENT DATE: 20231122
